FAERS Safety Report 10254580 (Version 1)
Quarter: 2014Q2

REPORT INFORMATION
  Report Type: Spontaneous
  Country: DE (occurrence: DE)
  Receive Date: 20140624
  Receipt Date: 20140624
  Transmission Date: 20141212
  Serious: Yes (Other)
  Sender: FDA-Public Use
  Company Number: DE-DRREDDYS-GER/GER/14/0041201

PATIENT
  Sex: Female
  Weight: 3.22 kg

DRUGS (2)
  1. QUETIAPINE [Suspect]
     Indication: PRODUCT USED FOR UNKNOWN INDICATION
     Dosage: 400 (MG/D)/ IN THE BEGINNING 400MG/D, REDUCED IN FIRST TRIMESTER TO 300 MG/ D
     Dates: start: 20130514, end: 20140212
  2. FOLIO [Concomitant]
     Indication: PRODUCT USED FOR UNKNOWN INDICATION
     Dosage: 0.4 [MG/D (BIS 0.2 MG/D ]
     Dates: start: 20130616, end: 20140212

REACTIONS (2)
  - Hyperbilirubinaemia neonatal [Recovered/Resolved]
  - Foetal exposure during pregnancy [Unknown]
